FAERS Safety Report 8799011 (Version 1)
Quarter: 2012Q4

REPORT INFORMATION
  Report Type: 
  Country: NL (occurrence: NL)
  Receive Date: 20120920
  Receipt Date: 20120920
  Transmission Date: 20130627
  Serious: Yes (Other)
  Sender: FDA-Public Use
  Company Number: PHHY2012NL080986

PATIENT
  Age: 71 Year
  Sex: Female

DRUGS (8)
  1. NITROFURANTOIN [Suspect]
     Indication: URINARY TRACT INFECTION
     Dosage: 100 mg, QID
  2. INSULIN [Concomitant]
     Dosage: UNK
  3. ACENOCOUMAROL [Concomitant]
     Dosage: UNK
  4. AMITRIPTYLINE [Concomitant]
     Dosage: UNK
  5. MAGNESIUM OXIDE [Concomitant]
     Dosage: UNK
  6. PARACETAMOL [Concomitant]
     Dosage: UNK
  7. CODEINE [Concomitant]
     Dosage: UNK
  8. MIDAZOLAM [Concomitant]
     Dosage: UNK

REACTIONS (3)
  - Vasculitis [Recovered/Resolved]
  - Erythema [Recovered/Resolved]
  - Purpura [Recovered/Resolved]
